FAERS Safety Report 17677369 (Version 2)
Quarter: 2021Q3

REPORT INFORMATION
  Report Type: Spontaneous
  Country: US (occurrence: US)
  Receive Date: 20200416
  Receipt Date: 20210827
  Transmission Date: 20211014
  Serious: Yes (Life-Threatening, Hospitalization, Other)
  Sender: FDA-Public Use
  Company Number: US-BRISTOL-MYERS SQUIBB COMPANY-BMS-2020-030597

PATIENT
  Age: 60 Year
  Sex: Female

DRUGS (1)
  1. NIVOLUMAB [Suspect]
     Active Substance: NIVOLUMAB
     Indication: COLON CANCER
     Dosage: UNK
     Route: 065

REACTIONS (5)
  - Immune-mediated myocarditis [Recovering/Resolving]
  - Immune-mediated enterocolitis [Unknown]
  - Immune-mediated hepatitis [Unknown]
  - Cardiogenic shock [Unknown]
  - Ocular myasthenia [Unknown]
